FAERS Safety Report 4490557-7 (Version None)
Quarter: 2004Q4

REPORT INFORMATION
  Report Type: 
  Country: None (occurrence: None)
  Receive Date: 20041027
  Receipt Date: 20041014
  Transmission Date: 20050328
  Serious: Yes (Hospitalization)
  Sender: FDA-Public Use
  Company Number: 6011207

PATIENT
  Sex: Male

DRUGS (1)
  1. CONCOR COR (TABLETS) (BISOPROLOL) [Suspect]
     Indication: DRUG EXPOSURE DURING PREGNANCY
     Dosage: 2,5 MG (1 IN 1 D), TRANSPLACENTAL
     Route: 064

REACTIONS (5)
  - BLOOD GLUCOSE FLUCTUATION [None]
  - DRUG EXPOSURE DURING PREGNANCY [None]
  - HYPOGLYCAEMIA NEONATAL [None]
  - PLACENTAL INSUFFICIENCY [None]
  - PREMATURE BABY [None]
